FAERS Safety Report 4922160-6 (Version None)
Quarter: 2006Q1

REPORT INFORMATION
  Report Type: 
  Country: None (occurrence: None)
  Receive Date: 20060224
  Receipt Date: 20050831
  Transmission Date: 20060701
  Serious: Yes (Hospitalization)
  Sender: FDA-Public Use
  Company Number: US-MERCK-0509USA00091

PATIENT
  Age: 56 Year
  Sex: Male
  Weight: 164 kg

DRUGS (15)
  1. PRILOSEC [Concomitant]
     Indication: GASTROOESOPHAGEAL REFLUX DISEASE
     Route: 065
     Dates: start: 19950101
  2. VIOXX [Suspect]
     Indication: ARTHRITIS
     Route: 048
     Dates: start: 19990101, end: 20040901
  3. TOPROL-XL [Concomitant]
     Route: 065
     Dates: start: 19900101, end: 20040101
  4. HYDROCHLOROTHIAZIDE [Concomitant]
     Indication: HYPERTENSION
     Route: 065
     Dates: start: 19900101, end: 20040101
  5. HYDROCHLOROTHIAZIDE [Concomitant]
     Indication: OEDEMA PERIPHERAL
     Route: 065
     Dates: start: 19900101, end: 20040101
  6. LIPITOR [Concomitant]
     Route: 065
     Dates: start: 19900101, end: 20040101
  7. ZOCOR [Concomitant]
     Route: 048
     Dates: start: 19900101, end: 20040101
  8. NEXIUM [Concomitant]
     Route: 065
     Dates: start: 19950101
  9. VICODIN [Concomitant]
     Indication: ARTHRALGIA
     Route: 065
     Dates: start: 19980101
  10. EXCEDRIN (MIGRAINE) [Concomitant]
     Route: 065
     Dates: start: 19990101, end: 20040101
  11. GINSENG [Concomitant]
     Indication: LETHARGY
     Route: 065
     Dates: start: 19700101
  12. VITAMIN E [Concomitant]
     Indication: VITAMIN SUPPLEMENTATION
     Route: 065
     Dates: start: 19700101
  13. ACCUPRIL [Concomitant]
     Route: 065
     Dates: start: 19900101, end: 20040101
  14. VALIUM [Concomitant]
     Indication: FEELING OF RELAXATION
     Route: 065
     Dates: start: 19900101
  15. PRILOSEC [Concomitant]
     Indication: DYSPEPSIA
     Route: 065
     Dates: start: 19950101

REACTIONS (6)
  - BLOOD PARATHYROID HORMONE DECREASED [None]
  - CARDIAC FAILURE CONGESTIVE [None]
  - GOUT [None]
  - HYPERCALCAEMIA [None]
  - SKIN ULCER [None]
  - WEIGHT DECREASED [None]
